FAERS Safety Report 13226654 (Version 1)
Quarter: 2017Q1

REPORT INFORMATION
  Report Type: Spontaneous
  Country: US (occurrence: US)
  Receive Date: 20170213
  Receipt Date: 20170213
  Transmission Date: 20170428
  Serious: Yes (Hospitalization)
  Sender: FDA-Public Use
  Company Number: None

PATIENT
  Age: 63 Year
  Sex: Female

DRUGS (1)
  1. REVLIMID [Suspect]
     Active Substance: LENALIDOMIDE
     Indication: PLASMA CELL MYELOMA
     Route: 048
     Dates: start: 20170113

REACTIONS (4)
  - Pneumonia streptococcal [None]
  - Meningitis [None]
  - Endophthalmitis [None]
  - Bacteraemia [None]

NARRATIVE: CASE EVENT DATE: 20170122
